FAERS Safety Report 20081259 (Version 1)
Quarter: 2021Q4

REPORT INFORMATION
  Report Type: Spontaneous
  Country: US (occurrence: None)
  Receive Date: 20211117
  Receipt Date: 20211117
  Transmission Date: 20220303
  Serious: No
  Sender: FDA-Public Use
  Company Number: 2021A796980

PATIENT
  Sex: Female

DRUGS (1)
  1. LOKELMA [Suspect]
     Active Substance: SODIUM ZIRCONIUM CYCLOSILICATE
     Indication: Hyperkalaemia
     Dosage: 10.0G ONCE/SINGLE ADMINISTRATION
     Route: 048
     Dates: start: 20211018, end: 20211018

REACTIONS (1)
  - Bezoar [Unknown]

NARRATIVE: CASE EVENT DATE: 20211101
